FAERS Safety Report 5638136-X (Version None)
Quarter: 2008Q1

REPORT INFORMATION
  Report Type: 
  Country: None (occurrence: None)
  Receive Date: 20080221
  Receipt Date: 20080211
  Transmission Date: 20080703
  Serious: Yes (Hospitalization)
  Sender: FDA-Public Use
  Company Number: CERZ-1000074

PATIENT
  Age: 19 Year
  Sex: Female
  Weight: 40 kg

DRUGS (2)
  1. CEREZYME [Suspect]
     Indication: GAUCHER'S DISEASE
     Dosage: 120 U/KG, Q2W, INTRAVENOUS; 60 U/KG, Q2W
     Route: 042
     Dates: start: 20040201, end: 20060101
  2. CEREZYME [Suspect]
     Indication: GAUCHER'S DISEASE
     Dosage: 120 U/KG, Q2W, INTRAVENOUS; 60 U/KG, Q2W
     Route: 042
     Dates: start: 20060101

REACTIONS (6)
  - ANAEMIA [None]
  - BONE DISORDER [None]
  - DISEASE PROGRESSION [None]
  - DISEASE RECURRENCE [None]
  - PANCYTOPENIA [None]
  - PYREXIA [None]
